FAERS Safety Report 8996742 (Version 1)
Quarter: 2013Q1

REPORT INFORMATION
  Report Type: Spontaneous
  Country: US (occurrence: US)
  Receive Date: 20130104
  Receipt Date: 20130104
  Transmission Date: 20140127
  Serious: Yes (Hospitalization)
  Sender: FDA-Public Use
  Company Number: US-009507513-0701USA02517

PATIENT
  Age: 28 Year
  Sex: Female

DRUGS (6)
  1. SINGULAIR [Suspect]
     Dosage: ONCE, QD
     Route: 048
  2. FLOVENT [Concomitant]
  3. SEREVENT [Concomitant]
  4. PRINIVIL [Concomitant]
  5. IMDUR [Concomitant]
  6. LANOXIN [Concomitant]

REACTIONS (5)
  - Back pain [Unknown]
  - Decreased appetite [Unknown]
  - Dyspnoea [Unknown]
  - Malaise [Unknown]
  - Pyrexia [Unknown]
